FAERS Safety Report 10692112 (Version 2)
Quarter: 2017Q1

REPORT INFORMATION
  Report Type: Spontaneous
  Country: JP (occurrence: JP)
  Receive Date: 20150106
  Receipt Date: 20170208
  Transmission Date: 20170428
  Serious: Yes (Life-Threatening, Hospitalization, Other)
  Sender: FDA-Public Use
  Company Number: JP-ACCORD-027944

PATIENT
  Age: 71 Year
  Sex: Female

DRUGS (3)
  1. CARBOPLATIN. [Suspect]
     Active Substance: CARBOPLATIN
     Indication: OVARIAN CANCER STAGE II
     Dosage: DOSE:BASED ON A TARGET AREA UNDER THE CURVE [AUC] OF 6 ON DAY 1.
  2. IRINOTECAN [Suspect]
     Active Substance: IRINOTECAN
     Indication: OVARIAN CANCER STAGE II
     Dosage: DOSE OF 100 MG/MM2 FOR 90 MIN ON DAYS 1, 8, AND 15 AT 4-WEEK INTERVALS.
  3. PACLITAXEL/PACLITAXEL LIPOSOME [Suspect]
     Active Substance: PACLITAXEL
     Indication: OVARIAN CANCER STAGE II
     Dosage: DOSE: 80 MG/MM2 ON DAYS 1, 8, AND 15.

REACTIONS (4)
  - Drug resistance [Unknown]
  - Febrile neutropenia [Recovered/Resolved]
  - Bone marrow failure [Unknown]
  - Diarrhoea [Recovered/Resolved]
